FAERS Safety Report 18618151 (Version 6)
Quarter: 2022Q2

REPORT INFORMATION
  Report Type: Report from Study
  Country: FR (occurrence: FR)
  Receive Date: 20201215
  Receipt Date: 20220407
  Transmission Date: 20220720
  Serious: Yes (Death, Life-Threatening, Other)
  Sender: FDA-Public Use
  Company Number: FR-JNJFOC-20171034231

PATIENT
  Age: 61 Year
  Sex: Male
  Weight: 98 kg

DRUGS (18)
  1. METHOTREXATE [Suspect]
     Active Substance: METHOTREXATE
     Indication: Product used for unknown indication
     Dosage: 15 MILLIGRAM, QW
     Route: 058
     Dates: start: 20150309
  2. FOLIC ACID [Suspect]
     Active Substance: FOLIC ACID
     Indication: Product used for unknown indication
     Dosage: 5 MILLIGRAM, QW
     Route: 065
     Dates: start: 20150309
  3. STELARA [Suspect]
     Active Substance: USTEKINUMAB
     Indication: Psoriasis
     Dosage: 45 MILLIGRAM, Q28D (I DF EVERY 4 WEEKS)(START: 19-MAY-2017)
     Route: 058
  4. STELARA [Suspect]
     Active Substance: USTEKINUMAB
     Dosage: 90 MILLIGRAM EVERY 12 WEEKS (START-20-JUN-2017)
     Route: 058
  5. STELARA [Suspect]
     Active Substance: USTEKINUMAB
     Dosage: 180 MILLIGRAM, QW (45 MG, 4W)/09-MAY-2017
     Route: 058
  6. REMICADE [Suspect]
     Active Substance: INFLIXIMAB
     Indication: Psoriasis
     Dosage: 490 MILLIGRAM, START 27-OCT-2015
     Route: 042
  7. REMICADE [Suspect]
     Active Substance: INFLIXIMAB
     Dosage: 500 MILLIGRAM, Q2W (ONE DF EVERY 2 WEEKS), START 12-MAY-2016
     Route: 042
     Dates: end: 20170519
  8. COSENTYX [Suspect]
     Active Substance: SECUKINUMAB
     Indication: Psoriasis
     Dosage: 300 MILLIGRAM, Q28D (START DATE: 24-NOV-2017 )
     Route: 058
  9. COSENTYX [Suspect]
     Active Substance: SECUKINUMAB
     Dosage: 300 MILLIGRAM, QW (300 MG, QW)/24-NOV-2017
     Route: 058
  10. CLOBETASOL PROPIONATE [Concomitant]
     Active Substance: CLOBETASOL PROPIONATE
     Indication: Product used for unknown indication
     Dosage: UNK, START 27-JUL-2015
     Route: 065
  11. ESOMEPRAZOLE [Concomitant]
     Active Substance: ESOMEPRAZOLE
     Indication: Product used for unknown indication
     Dosage: UNK, START OCT-2015
     Route: 065
  12. CLOBETASOL PROPIONATE [Concomitant]
     Active Substance: CLOBETASOL PROPIONATE
     Indication: Product used for unknown indication
     Dosage: MAR-2015
     Route: 065
  13. CLOBETASOL PROPIONATE [Concomitant]
     Active Substance: CLOBETASOL PROPIONATE
     Dosage: 12-MAY-2016
     Route: 065
  14. ESOMEPRAZOLE [Concomitant]
     Active Substance: ESOMEPRAZOLE
     Indication: Product used for unknown indication
     Dosage: UNK (START : 25-AUG-2017)
     Route: 065
  15. Dermoval [Concomitant]
     Indication: Product used for unknown indication
     Dosage: UNK (START DATE: 12-MAY-2016)
     Route: 065
  16. Dexeryl [Concomitant]
     Indication: Product used for unknown indication
     Dosage: UNK (START DATE-13-MAY-2015)
     Route: 065
  17. CELECOXIB [Concomitant]
     Active Substance: CELECOXIB
     Indication: Product used for unknown indication
     Dosage: UNK
     Route: 065
  18. CELEBREX [Concomitant]
     Active Substance: CELECOXIB
     Indication: Product used for unknown indication
     Dosage: UNK (START DATE: 19-MAY-2017)
     Route: 065

REACTIONS (6)
  - Sudden death [Fatal]
  - Product use issue [Fatal]
  - Off label use [Fatal]
  - Tooth abscess [Fatal]
  - Overdose [Fatal]
  - Inappropriate schedule of product administration [Fatal]

NARRATIVE: CASE EVENT DATE: 20150309
